FAERS Safety Report 9671236 (Version 1)
Quarter: 2013Q4

REPORT INFORMATION
  Report Type: Spontaneous
  Country: US (occurrence: US)
  Receive Date: 20131106
  Receipt Date: 20131106
  Transmission Date: 20140711
  Serious: No
  Sender: FDA-Public Use
  Company Number: US-BAYER-2013-131810

PATIENT
  Age: 24 Year
  Sex: Female

DRUGS (1)
  1. MIRENA [Suspect]
     Indication: PREMENSTRUAL DYSPHORIC DISORDER
     Dosage: 20 MCG/24HR, CONT
     Route: 015
     Dates: start: 20130928

REACTIONS (3)
  - Dysuria [None]
  - Abdominal pain lower [None]
  - Insomnia [None]
